FAERS Safety Report 6366195-8 (Version None)
Quarter: 2009Q3

REPORT INFORMATION
  Report Type: 
  Country: None (occurrence: None)
  Receive Date: 20090921
  Receipt Date: 20090914
  Transmission Date: 20100115
  Serious: Yes (Other)
  Sender: FDA-Public Use
  Company Number: FR-BAYER-200932410GPV

PATIENT
  Sex: Female

DRUGS (1)
  1. BETAFERON [Suspect]
     Dosage: PATIENT HAD DIFFICULTIES TO RECONSTITUTE AND TO INJECT BETAFERON
     Dates: start: 20081201

REACTIONS (2)
  - MONOPLEGIA [None]
  - PAIN IN EXTREMITY [None]
